FAERS Safety Report 18949190 (Version 1)
Quarter: 2021Q1

REPORT INFORMATION
  Report Type: Spontaneous
  Country: US (occurrence: US)
  Receive Date: 20210227
  Receipt Date: 20210227
  Transmission Date: 20210420
  Serious: No
  Sender: FDA-Public Use
  Company Number: US-ROCHE-2649324

PATIENT
  Sex: Female
  Weight: 74 kg

DRUGS (2)
  1. XOLAIR [Suspect]
     Active Substance: OMALIZUMAB
     Indication: IDIOPATHIC URTICARIA
     Dosage: EVERY MONTH
     Route: 065
     Dates: start: 20200220
  2. XOLAIR [Suspect]
     Active Substance: OMALIZUMAB
     Indication: SYSTEMIC MASTOCYTOSIS
     Route: 065
     Dates: start: 201810, end: 202004

REACTIONS (5)
  - Pain [Unknown]
  - Myalgia [Unknown]
  - Fatigue [Unknown]
  - Pruritus [Unknown]
  - Nausea [Unknown]

NARRATIVE: CASE EVENT DATE: 2020
